FAERS Safety Report 24988258 (Version 2)
Quarter: 2025Q1

REPORT INFORMATION
  Report Type: Spontaneous
  Country: US (occurrence: US)
  Receive Date: 20250220
  Receipt Date: 20250318
  Transmission Date: 20250408
  Serious: Yes (Other)
  Sender: SUNOVION
  Company Number: US-SMPA-2025SPA001879

PATIENT

DRUGS (1)
  1. APTIOM [Suspect]
     Active Substance: ESLICARBAZEPINE ACETATE
     Route: 048

REACTIONS (7)
  - Brain injury [Unknown]
  - Brain neoplasm [Unknown]
  - Epilepsy [Unknown]
  - Seizure [Unknown]
  - Stress [Unknown]
  - Dysphemia [Unknown]
  - Thought blocking [Unknown]
